FAERS Safety Report 6585603-0 (Version None)
Quarter: 2010Q1

REPORT INFORMATION
  Report Type: 
  Country: None (occurrence: None)
  Receive Date: 20100217
  Receipt Date: 20100208
  Transmission Date: 20100710
  Serious: Yes (Hospitalization)
  Sender: FDA-Public Use
  Company Number: TR-ELI_LILLY_AND_COMPANY-TR201002002553

PATIENT
  Sex: Male

DRUGS (6)
  1. HUMULIN R [Suspect]
     Indication: GESTATIONAL DIABETES
     Dosage: 5 IU, EACH MORNING
     Route: 064
     Dates: start: 20091101, end: 20100119
  2. HUMULIN R [Suspect]
     Dosage: 4 IU, OTHER
     Route: 058
     Dates: start: 20091101, end: 20100119
  3. HUMULIN R [Suspect]
     Dosage: 6 IU, EACH EVENING
     Route: 058
     Dates: start: 20091101, end: 20100120
  4. HUMULIN N [Suspect]
     Indication: GESTATIONAL DIABETES
     Dosage: 10 U, DAILY (1/D)
     Route: 064
     Dates: start: 20091101, end: 20100119
  5. INNOHEP [Concomitant]
     Indication: ANTIPLATELET THERAPY
     Dosage: UNK, DAILY (1/D)
     Route: 064
  6. MAGNESIUM [Concomitant]
     Indication: SUPPLEMENTATION THERAPY
     Dosage: UNK, DAILY (1/D)
     Route: 064

REACTIONS (4)
  - DRUG EXPOSURE DURING PREGNANCY [None]
  - FOETAL MACROSOMIA [None]
  - HYPOGLYCAEMIA [None]
  - JAUNDICE [None]
